FAERS Safety Report 15251310 (Version 1)
Quarter: 2018Q3

REPORT INFORMATION
  Report Type: Spontaneous
  Country: US (occurrence: US)
  Receive Date: 20180717
  Receipt Date: 20180717
  Transmission Date: 20181010
  Serious: Yes (Hospitalization)
  Sender: FDA-Public Use
  Company Number: None

PATIENT
  Age: 80 Year
  Sex: Male

DRUGS (1)
  1. WARFARIN [Suspect]
     Active Substance: WARFARIN
     Indication: ATRIAL FIBRILLATION
     Route: 048

REACTIONS (9)
  - Haemorrhage [None]
  - Haemoglobin decreased [None]
  - Productive cough [None]
  - Pyrexia [None]
  - Abdominal pain lower [None]
  - International normalised ratio decreased [None]
  - International normalised ratio increased [None]
  - Asthenia [None]
  - Haematocrit decreased [None]

NARRATIVE: CASE EVENT DATE: 20180303
